FAERS Safety Report 5041237-0 (Version None)
Quarter: 2006Q3

REPORT INFORMATION
  Report Type: 
  Country: None (occurrence: None)
  Receive Date: 20060703
  Receipt Date: 20060630
  Transmission Date: 20061208
  Serious: Yes (Hospitalization)
  Sender: FDA-Public Use
  Company Number: FR-GLAXOSMITHKLINE-B0429415A

PATIENT
  Age: 17 Year
  Sex: Female

DRUGS (2)
  1. CLAMOXYL [Suspect]
     Indication: NASOPHARYNGITIS
     Dosage: 1.5G PER DAY
     Route: 048
     Dates: start: 20060415, end: 20060422
  2. ANTADYS [Suspect]
     Indication: DYSMENORRHOEA
     Route: 048
     Dates: start: 20060516

REACTIONS (8)
  - BACK PAIN [None]
  - BLOOD CREATININE INCREASED [None]
  - C-REACTIVE PROTEIN INCREASED [None]
  - MALAISE [None]
  - PROTEINURIA [None]
  - PYREXIA [None]
  - TUBULOINTERSTITIAL NEPHRITIS [None]
  - VOMITING [None]
